FAERS Safety Report 5334788-2 (Version None)
Quarter: 2007Q2

REPORT INFORMATION
  Report Type: 
  Country: None (occurrence: None)
  Receive Date: 20070525
  Receipt Date: 20070517
  Transmission Date: 20071010
  Serious: Yes (Hospitalization)
  Sender: FDA-Public Use
  Company Number: PHHO2007PL08436

PATIENT
  Age: 85 Year
  Sex: Female
  Weight: 73 kg

DRUGS (5)
  1. ACLASTA (ZOLEDRONIC ACID) VS PLACEBO [Suspect]
     Indication: OSTEOPOROSIS POSTMENOPAUSAL
     Dosage: DOUBLE BLIND
     Route: 042
  2. CALCIUM SANDOZ [Concomitant]
     Indication: OSTEOPOROSIS
  3. VITAMIN D3 [Concomitant]
     Indication: OSTEOPOROSIS
  4. ENARENAL [Concomitant]
     Indication: HYPERTENSION
  5. TERTENSIF - SLOW RELEASE [Concomitant]
     Indication: HYPERTENSION

REACTIONS (3)
  - FALL [None]
  - HIP FRACTURE [None]
  - HIP SURGERY [None]
